FAERS Safety Report 7415644 (Version 2)
Quarter: 2013Q1

REPORT INFORMATION
  Report Type: Spontaneous
  Country: US (occurrence: US)
  Receive Date: 20100610
  Receipt Date: 20130322
  Transmission Date: 20140127
  Serious: Yes (Other)
  Sender: FDA-Public Use
  Company Number: US-JNJFOC-20100602313

PATIENT
  Sex: 0

DRUGS (2)
  1. DOXIL [Suspect]
     Indication: BREAST CANCER METASTATIC
     Dosage: 20 MG/M2 OR 30 MG/M2 OR 45 MG/M2 OR 60 MG/M2
     Route: 042
  2. LAPATINIB [Suspect]
     Indication: BREAST CANCER METASTATIC
     Route: 048

REACTIONS (1)
  - Arthralgia [Unknown]
